FAERS Safety Report 9366599 (Version 1)
Quarter: 2013Q2

REPORT INFORMATION
  Report Type: Spontaneous
  Country: IT (occurrence: IT)
  Receive Date: 20130625
  Receipt Date: 20130625
  Transmission Date: 20140414
  Serious: Yes (Hospitalization)
  Sender: FDA-Public Use
  Company Number: IT-PFIZER INC-2013189402

PATIENT
  Age: 73 Year
  Sex: Female

DRUGS (5)
  1. EFEXOR ER [Suspect]
     Indication: DEPRESSION
     Dosage: 7 UNITS DOSE TOTAL (OF 75MG)
     Route: 048
     Dates: start: 20130604, end: 20130604
  2. SONIREM [Suspect]
     Dosage: 20 ML TOTAL
     Route: 048
     Dates: start: 20130604, end: 20130604
  3. AMLODIPINE BESILATE/OLMESARTAN MEDOXOMIL [Concomitant]
     Indication: HYPERTENSION
     Route: 048
  4. MODURETIC [Concomitant]
     Route: 048
  5. CARDIOASPIRIN [Concomitant]
     Route: 048

REACTIONS (2)
  - Sopor [Recovered/Resolved]
  - Drug abuse [Recovered/Resolved]
